FAERS Safety Report 10929815 (Version 2)
Quarter: 2015Q2

REPORT INFORMATION
  Report Type: Report from Study
  Country: PL (occurrence: PL)
  Receive Date: 20150319
  Receipt Date: 20150418
  Transmission Date: 20150821
  Serious: Yes (Hospitalization)
  Sender: FDA-Public Use
  Company Number: PL-B.I. PHARMACEUTICALS,INC./RIDGEFIELD-2015-BI-13323BI

PATIENT
  Age: 64 Year
  Sex: Female
  Weight: 91.5 kg

DRUGS (5)
  1. BI 655075 [Suspect]
     Active Substance: IDARUCIZUMAB
     Indication: COAGULATION TIME SHORTENED
     Route: 042
     Dates: start: 20141203, end: 20141203
  2. DABIGATRAN [Concomitant]
     Active Substance: DABIGATRAN
     Route: 065
     Dates: start: 201212, end: 20141202
  3. DABIGATRAN [Concomitant]
     Active Substance: DABIGATRAN
     Indication: ATRIAL FIBRILLATION
     Dosage: 220 MG
     Route: 048
     Dates: start: 20150113, end: 20150210
  4. DIGOXINE [Concomitant]
     Active Substance: DIGOXIN
     Indication: CARDIAC FAILURE
     Dosage: 0.1 MG
     Route: 048
     Dates: start: 2013, end: 20150210
  5. SPIRONOLACTONE. [Concomitant]
     Active Substance: SPIRONOLACTONE
     Indication: CARDIAC FAILURE
     Dosage: 25 MG
     Route: 048
     Dates: start: 2007, end: 20150210

REACTIONS (2)
  - Renal failure [Recovered/Resolved]
  - Acute kidney injury [Recovered/Resolved]

NARRATIVE: CASE EVENT DATE: 20141205
